FAERS Safety Report 9685633 (Version 1)
Quarter: 2013Q4

REPORT INFORMATION
  Report Type: Spontaneous
  Country: US (occurrence: US)
  Receive Date: 20131113
  Receipt Date: 20131113
  Transmission Date: 20140711
  Serious: No
  Sender: FDA-Public Use
  Company Number: US-GLAXOSMITHKLINE-A1023418A

PATIENT
  Age: 65 Year
  Sex: Female

DRUGS (5)
  1. COREG [Suspect]
     Indication: HYPERTENSION
     Dosage: 20MG PER DAY
     Route: 048
     Dates: start: 201302
  2. LISINOPRIL [Concomitant]
  3. DIAVAN [Concomitant]
  4. CLONIDINE PATCH [Concomitant]
  5. ALEVE [Concomitant]

REACTIONS (1)
  - Blood pressure increased [Not Recovered/Not Resolved]
